FAERS Safety Report 13697888 (Version 1)
Quarter: 2017Q2

REPORT INFORMATION
  Report Type: Report from Study
  Country: US (occurrence: US)
  Receive Date: 20170628
  Receipt Date: 20170628
  Transmission Date: 20170830
  Serious: Yes (Hospitalization, Other)
  Sender: FDA-Public Use
  Company Number: US-TEVA-739714USA

PATIENT
  Age: 54 Year
  Sex: Female
  Weight: 72.64 kg

DRUGS (10)
  1. PRAZOSIN HYDROCHLORIDE. [Suspect]
     Active Substance: PRAZOSIN HYDROCHLORIDE
     Route: 065
  2. CLONAZEPAM. [Concomitant]
     Active Substance: CLONAZEPAM
     Route: 065
  3. ATORVASTATIN [Concomitant]
     Active Substance: ATORVASTATIN
     Indication: BLOOD CHOLESTEROL ABNORMAL
  4. CLOZAPINE. [Suspect]
     Active Substance: CLOZAPINE
     Indication: SCHIZOPHRENIA
  5. LORCET [Concomitant]
     Active Substance: ACETAMINOPHEN\HYDROCODONE BITARTRATE
  6. CLOZAPINE. [Suspect]
     Active Substance: CLOZAPINE
     Indication: BIPOLAR DISORDER
     Route: 065
     Dates: start: 20130928
  7. MIRTAZAPINE. [Suspect]
     Active Substance: MIRTAZAPINE
     Route: 065
  8. GABAPENTIN. [Concomitant]
     Active Substance: GABAPENTIN
  9. PROPRANOLOL [Concomitant]
     Active Substance: PROPRANOLOL HYDROCHLORIDE
     Indication: BLOOD PRESSURE ABNORMAL
     Dosage: 40 MILLIGRAM DAILY;
  10. OMEPRAZOLE. [Concomitant]
     Active Substance: OMEPRAZOLE

REACTIONS (6)
  - Fall [Recovered/Resolved]
  - Seizure [Recovered/Resolved]
  - Neuropathy peripheral [Not Recovered/Not Resolved]
  - Restless legs syndrome [Not Recovered/Not Resolved]
  - Myocardial infarction [Unknown]
  - Neuroleptic malignant syndrome [Not Recovered/Not Resolved]

NARRATIVE: CASE EVENT DATE: 201611
